FAERS Safety Report 9777326 (Version 1)
Quarter: 2013Q4

REPORT INFORMATION
  Report Type: Spontaneous
  Country: US (occurrence: US)
  Receive Date: 20131221
  Receipt Date: 20131221
  Transmission Date: 20140711
  Serious: Yes (Other)
  Sender: FDA-Public Use
  Company Number: US-UCBSA-106226

PATIENT
  Sex: Female

DRUGS (2)
  1. VIMPAT [Suspect]
     Indication: CONVULSION
     Dosage: INCREASED DOSE: 200 MG
  2. VIMPAT [Suspect]
     Indication: CONVULSION
     Dosage: UNKNOWN DOSE

REACTIONS (9)
  - Chest pain [Unknown]
  - Palpitations [Unknown]
  - Dyspnoea [Unknown]
  - Angina pectoris [Unknown]
  - Adverse drug reaction [Unknown]
  - Agitation [Unknown]
  - Poor quality sleep [Unknown]
  - Irritability [Unknown]
  - Depression [Unknown]
